FAERS Safety Report 18092640 (Version 1)
Quarter: 2020Q3

REPORT INFORMATION
  Report Type: Spontaneous
  Country: US (occurrence: US)
  Receive Date: 20200730
  Receipt Date: 20200730
  Transmission Date: 20201103
  Serious: No
  Sender: FDA-Public Use
  Company Number: None

PATIENT

DRUGS (1)
  1. DR JS NATURAL ADVANCED FORMULA HAND SANITIZER [Suspect]
     Active Substance: ALCOHOL
     Indication: INFECTION PROPHYLAXIS
     Dosage: ?          QUANTITY:10 ML;?
     Route: 061
     Dates: start: 20200701, end: 20200730

REACTIONS (3)
  - Product quality issue [None]
  - Paraesthesia [None]
  - Product odour abnormal [None]

NARRATIVE: CASE EVENT DATE: 20200730
